APPROVED DRUG PRODUCT: CHILDREN'S FEXOFENADINE HYDROCHLORIDE ALLERGY
Active Ingredient: FEXOFENADINE HYDROCHLORIDE
Strength: 30MG
Dosage Form/Route: TABLET;ORAL
Application: A204097 | Product #001
Applicant: HETERO LABS LTD UNIT V
Approved: Aug 19, 2016 | RLD: No | RS: No | Type: OTC